FAERS Safety Report 5564896-2 (Version None)
Quarter: 2007Q4

REPORT INFORMATION
  Report Type: 
  Country: None (occurrence: None)
  Receive Date: 20071212
  Receipt Date: 20071127
  Transmission Date: 20080405
  Serious: Yes (Hospitalization)
  Sender: FDA-Public Use
  Company Number: S07-FRA-06221-01

PATIENT
  Age: 45 Year
  Sex: Female

DRUGS (1)
  1. CITALOPRAM HYDROBROMIDE [Suspect]
     Indication: DEPRESSION
     Dosage: 10 MG ONCE;PO
     Route: 048

REACTIONS (6)
  - IMPULSIVE BEHAVIOUR [None]
  - MYDRIASIS [None]
  - OBSESSIVE THOUGHTS [None]
  - PANIC ATTACK [None]
  - PHOBIA [None]
  - SUICIDAL IDEATION [None]
